FAERS Safety Report 13078349 (Version 1)
Quarter: 2017Q1

REPORT INFORMATION
  Report Type: Spontaneous
  Country: US (occurrence: US)
  Receive Date: 20170102
  Receipt Date: 20170102
  Transmission Date: 20170428
  Serious: No
  Sender: FDA-Public Use
  Company Number: US-TEVA-620469USA

PATIENT
  Age: 66 Year
  Sex: Male
  Weight: 81.72 kg

DRUGS (2)
  1. MEFLOQUINE [Suspect]
     Active Substance: MEFLOQUINE
     Indication: PLASMODIUM VIVAX INFECTION
     Route: 048
     Dates: start: 20151117, end: 20151127
  2. MEFLOQUINE [Suspect]
     Active Substance: MEFLOQUINE
     Indication: PLASMODIUM FALCIPARUM INFECTION

REACTIONS (5)
  - Hallucination [Not Recovered/Not Resolved]
  - Tinnitus [Not Recovered/Not Resolved]
  - Abdominal pain upper [Not Recovered/Not Resolved]
  - Insomnia [Not Recovered/Not Resolved]
  - Dizziness [Not Recovered/Not Resolved]

NARRATIVE: CASE EVENT DATE: 201511
